FAERS Safety Report 11009157 (Version 2)
Quarter: 2015Q2

REPORT INFORMATION
  Report Type: Spontaneous
  Country: FR (occurrence: None)
  Receive Date: 20150408
  Receipt Date: 20150422
  Transmission Date: 20150821
  Serious: Yes (Hospitalization)
  Sender: FDA-Public Use
  Company Number: FK201501641

PATIENT
  Age: 61 Year
  Sex: Female

DRUGS (4)
  1. DOCETAXEL. [Suspect]
     Active Substance: DOCETAXEL
     Indication: OVARIAN EPITHELIAL CANCER
     Dosage: 75 MG/M2, 7 CYCLES
     Route: 042
     Dates: start: 20140109, end: 20140613
  2. CARBOPLATIN HOSPIRA (CARBOPLATIN) [Concomitant]
  3. AVASTIN [Concomitant]
     Active Substance: BEVACIZUMAB
  4. PACLITAXEL 6MG/ML CONCENTRATE FOR SOLUTION FOR INFUSION (PACLITAXEL) (PACLITAXEL)? [Suspect]
     Active Substance: PACLITAXEL
     Indication: OVARIAN EPITHELIAL CANCER
     Dosage: 175 MG/M2, INTRAVENOUS (NOT OTHERWISE SPECIFIED)?
     Route: 042
     Dates: start: 20131206

REACTIONS (6)
  - Myelodysplastic syndrome [None]
  - Pancytopenia [None]
  - Acute myeloid leukaemia [None]
  - Hypersensitivity [None]
  - Infusion related reaction [None]
  - Haematotoxicity [None]

NARRATIVE: CASE EVENT DATE: 20150122
